FAERS Safety Report 6156283-3 (Version None)
Quarter: 2009Q2

REPORT INFORMATION
  Report Type: 
  Country: None (occurrence: None)
  Receive Date: 20090413
  Receipt Date: 20090330
  Transmission Date: 20091009
  Serious: Yes (Hospitalization)
  Sender: FDA-Public Use
  Company Number: 232740K09USA

PATIENT
  Age: 45 Year
  Sex: Female
  Weight: 93 kg

DRUGS (3)
  1. REBIF [Suspect]
     Indication: MULTIPLE SCLEROSIS
     Dosage: 3 IN 1 WEEKS, SUBCUTANEOUS
     Route: 058
     Dates: start: 20081105
  2. LYRICA [Concomitant]
  3. KLONOPIN [Concomitant]

REACTIONS (1)
  - HAEMORRHOIDS [None]
